FAERS Safety Report 7973028-2 (Version None)
Quarter: 2011Q4

REPORT INFORMATION
  Report Type: 
  Country: None (occurrence: None)
  Receive Date: 20111213
  Receipt Date: 20111212
  Transmission Date: 20120403
  Serious: Yes (Death, Hospitalization)
  Sender: FDA-Public Use
  Company Number: DE-BRISTOL-MYERS SQUIBB COMPANY-16027278

PATIENT
  Age: 52 Year
  Sex: Male
  Weight: 94 kg

DRUGS (9)
  1. FORTECORTIN [Concomitant]
     Indication: NAUSEA
     Route: 042
     Dates: start: 20110908, end: 20110911
  2. FRAGMIN [Concomitant]
     Indication: THROMBOSIS PROPHYLAXIS
     Dosage: 5000 MIO.I.E
     Route: 058
     Dates: start: 20110908, end: 20110911
  3. IPILIMUMAB [Suspect]
     Indication: MALIGNANT MELANOMA
     Route: 042
     Dates: start: 20110712, end: 20110802
  4. HALDOL [Concomitant]
     Indication: DIZZINESS
     Dosage: ALSO TAKEN AS CONMED
     Route: 048
     Dates: start: 20110908, end: 20110908
  5. DIAZEPAM [Concomitant]
     Indication: FEAR
     Route: 042
     Dates: start: 20110908, end: 20110908
  6. APREPITANT [Concomitant]
     Indication: NAUSEA
     Route: 048
     Dates: start: 20110908, end: 20110908
  7. METOCLOPRAMIDE HYDROCHLORIDE [Concomitant]
     Indication: NAUSEA
     Route: 042
     Dates: start: 20110910, end: 20110911
  8. DIFLUCAN [Concomitant]
     Route: 048
     Dates: start: 20110908, end: 20110908
  9. MELPERONE HCL [Concomitant]
     Indication: FEAR
     Route: 042
     Dates: start: 20110908, end: 20110908

REACTIONS (2)
  - NEOPLASM MALIGNANT [None]
  - DIZZINESS [None]
